FAERS Safety Report 15891728 (Version 1)
Quarter: 2019Q1

REPORT INFORMATION
  Report Type: Spontaneous
  Country: US (occurrence: US)
  Receive Date: 20190130
  Receipt Date: 20190130
  Transmission Date: 20190417
  Serious: No
  Sender: FDA-Public Use
  Company Number: US-TEVA-2019-US-1001800

PATIENT
  Age: 66 Year
  Sex: Male

DRUGS (1)
  1. TEMAZEPAM TEVA [Suspect]
     Active Substance: TEMAZEPAM
     Route: 065

REACTIONS (2)
  - Product substitution issue [None]
  - Drug ineffective [Unknown]
